FAERS Safety Report 26063679 (Version 3)
Quarter: 2025Q4

REPORT INFORMATION
  Report Type: Spontaneous
  Country: EU (occurrence: EU)
  Receive Date: 20251119
  Receipt Date: 20251224
  Transmission Date: 20260117
  Serious: Yes (Other)
  Sender: Vantive US Healthcare
  Company Number: EU-VANTIVE-2025VAN005196

PATIENT
  Age: 11 Year
  Sex: Male

DRUGS (13)
  1. CALCIUM CL\DEXTROSE\MAGNESIUM CL\SODIUM BICAR\SODIUM CL\SODIUM LACT [Suspect]
     Active Substance: CALCIUM CHLORIDE\DEXTROSE MONOHYDRATE\MAGNESIUM CHLORIDE\SODIUM BICARBONATE\SODIUM CHLORIDE\SODIUM L
     Dosage: 2 BAGS IN APD (ADMINISTERED DURING NOCTURNAL  CYCLES) (SECOND PROGRAMME)
  2. CALCIUM CL\DEXTROSE\MAGNESIUM CL\SODIUM BICAR\SODIUM CL\SODIUM LACT [Suspect]
     Active Substance: CALCIUM CHLORIDE\DEXTROSE MONOHYDRATE\MAGNESIUM CHLORIDE\SODIUM BICARBONATE\SODIUM CHLORIDE\SODIUM L
     Dosage: 2 BAGS IN APD (1 X DAY; IN  6 NIGHT CYCLES; INFUSION VOL: 1000ML (INITIAL PROGRAMME)
  3. CALCIUM CL\DEXTROSE\MAGNESIUM CL\SODIUM BICAR\SODIUM CL\SODIUM LACT [Suspect]
     Active Substance: CALCIUM CHLORIDE\DEXTROSE MONOHYDRATE\MAGNESIUM CHLORIDE\SODIUM BICARBONATE\SODIUM CHLORIDE\SODIUM L
     Dosage: 2 BAGS, A 4-HOUR DAYTIME SESSION
  4. CALCIUM CL\DEXTROSE\MAGNESIUM CL\SODIUM BICAR\SODIUM CL\SODIUM LACT [Suspect]
     Active Substance: CALCIUM CHLORIDE\DEXTROSE MONOHYDRATE\MAGNESIUM CHLORIDE\SODIUM BICARBONATE\SODIUM CHLORIDE\SODIUM L
     Dosage: 1 BAG 50 MG (EVERY OTHER DAY, DURING THE 6 NIGHTLY CYCLES, WITH AN INFUSION VOLUME OF 1000 ML)
  5. CALCIUM CL\DEXTROSE\MAGNESIUM CL\SODIUM BICAR\SODIUM CL\SODIUM LACT [Suspect]
     Active Substance: CALCIUM CHLORIDE\DEXTROSE MONOHYDRATE\MAGNESIUM CHLORIDE\SODIUM BICARBONATE\SODIUM CHLORIDE\SODIUM L
     Dosage: 1 BAG IN APD (ADMINISTERED DURING NOCTURNAL  CYCLES) (SECOND PROGRAMME)
  6. EXTRANEAL [Suspect]
     Active Substance: CALCIUM CHLORIDE\ICODEXTRIN\MAGNESIUM CHLORIDE\SODIUM CHLORIDE\SODIUM LACTATE
     Dosage: 1 BAG (ONCE DAILY, DURING THE DAYTIME DWELL, WITH AN INFUSION VOLUME OF 500 ML.)
  7. EXTRANEAL [Suspect]
     Active Substance: CALCIUM CHLORIDE\ICODEXTRIN\MAGNESIUM CHLORIDE\SODIUM CHLORIDE\SODIUM LACTATE
     Dosage: 1 BAG (ADMINISTERED DURING THE DAYTIME DWELL)
  8. EXTRANEAL [Suspect]
     Active Substance: CALCIUM CHLORIDE\ICODEXTRIN\MAGNESIUM CHLORIDE\SODIUM CHLORIDE\SODIUM LACTATE
     Dosage: 1 BAG, A 4-HOUR DAYTIME SESSION
  9. ENALAPRIL [Concomitant]
     Active Substance: ENALAPRIL
     Dosage: 15 MG (1XDAY: 22:00)
  10. ROCALTROL [Concomitant]
     Active Substance: CALCITRIOL
     Dosage: 0,25 MCG (1XDAY: 18:00)
  11. ATENOLOL [Concomitant]
     Active Substance: ATENOLOL
     Dosage: 50 MG (1XDAY: 13:00)
  12. AMLODIPINE [Concomitant]
     Active Substance: AMLODIPINE BESYLATE
     Dosage: 10 MG (1XDAY: 08:00)
  13. CALCIUM CARBONATE [Concomitant]
     Active Substance: CALCIUM CARBONATE
     Dosage: UNK

REACTIONS (6)
  - Inguinal hernia [Unknown]
  - Hypervolaemia [Unknown]
  - Procedural complication [Not Recovered/Not Resolved]
  - Procedural pain [Unknown]
  - Scrotal oedema [Unknown]
  - Catheter site infection [Unknown]

NARRATIVE: CASE EVENT DATE: 20251107
